FAERS Safety Report 19709592 (Version 1)
Quarter: 2021Q3

REPORT INFORMATION
  Report Type: Report from Study
  Country: MX (occurrence: MX)
  Receive Date: 20210817
  Receipt Date: 20210817
  Transmission Date: 20211014
  Serious: Yes (Hospitalization, Other)
  Sender: FDA-Public Use
  Company Number: MX-SA-2020SA081888

PATIENT
  Age: 53 Year
  Sex: Female
  Weight: 57 kg

DRUGS (6)
  1. DUPILUMAB [Suspect]
     Active Substance: DUPILUMAB
     Indication: DERMATITIS
     Dosage: UNK UNK, QM
     Route: 058
  2. LORATADINE. [Concomitant]
     Active Substance: LORATADINE
     Indication: RHINITIS ALLERGIC
  3. SIMBICORT TURBUHALER [Concomitant]
     Active Substance: BUDESONIDE\FORMOTEROL FUMARATE
     Indication: RHINITIS ALLERGIC
  4. DUPILUMAB [Suspect]
     Active Substance: DUPILUMAB
     Indication: DERMATITIS ATOPIC
     Dosage: 300 MG
     Route: 058
     Dates: start: 20191112
  5. SIMBICORT TURBUHALER [Concomitant]
     Active Substance: BUDESONIDE\FORMOTEROL FUMARATE
     Indication: ASTHMA
  6. LORATADINE. [Concomitant]
     Active Substance: LORATADINE
     Indication: ASTHMA

REACTIONS (27)
  - Fall [Recovered/Resolved]
  - Accident [Not Recovered/Not Resolved]
  - Blood cholesterol increased [Recovering/Resolving]
  - Eye irritation [Not Recovered/Not Resolved]
  - Nerve compression [Unknown]
  - Hypoaesthesia [Unknown]
  - Limb operation [Recovering/Resolving]
  - Dry skin [Not Recovered/Not Resolved]
  - Vision blurred [Unknown]
  - Tendonitis [Not Recovered/Not Resolved]
  - Arthralgia [Unknown]
  - Product use issue [Unknown]
  - Musculoskeletal discomfort [Unknown]
  - Product use in unapproved indication [Unknown]
  - Therapeutic response unexpected [Unknown]
  - Inappropriate schedule of product administration [Unknown]
  - Fibrosis [Recovering/Resolving]
  - Rotator cuff syndrome [Recovering/Resolving]
  - Furuncle [Unknown]
  - Malaise [Unknown]
  - Pain [Recovered/Resolved]
  - Skin exfoliation [Not Recovered/Not Resolved]
  - Upper limb fracture [Not Recovered/Not Resolved]
  - Intentional product misuse [Unknown]
  - Mobility decreased [Recovered/Resolved]
  - Pain in extremity [Recovered/Resolved]
  - Injection site bruising [Unknown]

NARRATIVE: CASE EVENT DATE: 20200301
